FAERS Safety Report 12144517 (Version 2)
Quarter: 2016Q1

REPORT INFORMATION
  Report Type: Spontaneous
  Country: US (occurrence: US)
  Receive Date: 20160304
  Receipt Date: 20160318
  Transmission Date: 20160526
  Serious: Yes (Other)
  Sender: FDA-Public Use
  Company Number: US-BAYER-2016-036343

PATIENT
  Sex: Female

DRUGS (4)
  1. FLAGYL [Suspect]
     Active Substance: METRONIDAZOLE\METRONIDAZOLE HYDROCHLORIDE
  2. PREDNISONE. [Suspect]
     Active Substance: PREDNISONE
  3. CIMZIA [Suspect]
     Active Substance: CERTOLIZUMAB PEGOL
  4. CIPRO [Suspect]
     Active Substance: CIPROFLOXACIN HYDROCHLORIDE

REACTIONS (17)
  - Inflammation [None]
  - Mental disorder [None]
  - Laboratory test abnormal [None]
  - Diarrhoea [None]
  - Dizziness [None]
  - Musculoskeletal discomfort [None]
  - Fatigue [None]
  - Tremor [None]
  - Malnutrition [None]
  - Musculoskeletal pain [None]
  - White blood cell count increased [None]
  - C-reactive protein increased [None]
  - Frustration tolerance decreased [None]
  - Adverse drug reaction [None]
  - Palpitations [None]
  - Abdominal pain upper [None]
  - Candida infection [None]
